FAERS Safety Report 12809253 (Version 2)
Quarter: 2019Q1

REPORT INFORMATION
  Report Type: Spontaneous
  Country: US (occurrence: US)
  Receive Date: 20161004
  Receipt Date: 20190329
  Transmission Date: 20190417
  Serious: No
  Sender: FDA-Public Use
  Company Number: US-ASTRAZENECA-2016SE56761

PATIENT
  Age: 913 Month
  Sex: Male
  Weight: 92.1 kg

DRUGS (2)
  1. BYDUREON [Suspect]
     Active Substance: EXENATIDE
     Indication: TYPE 2 DIABETES MELLITUS
     Route: 058
     Dates: start: 20160211
  2. SODIUM BICARBONATE. [Concomitant]
     Active Substance: SODIUM BICARBONATE
     Indication: ACIDOSIS

REACTIONS (8)
  - Dysphonia [Unknown]
  - Nasopharyngitis [Unknown]
  - Injection site haemorrhage [Unknown]
  - Cataract [Unknown]
  - Cough [Unknown]
  - Injection site mass [Not Recovered/Not Resolved]
  - Device defective [Unknown]
  - Needle issue [Unknown]

NARRATIVE: CASE EVENT DATE: 201603
